FAERS Safety Report 8506819 (Version 2)
Quarter: 2014Q3

REPORT INFORMATION
  Report Type: Spontaneous
  Country: US (occurrence: US)
  Receive Date: 20120412
  Receipt Date: 20140709
  Transmission Date: 20150326
  Serious: No
  Sender: FDA-Public Use
  Company Number: US-ASTRAZENECA-2011SE46489

PATIENT
  Age: 49 Year
  Sex: Male
  Weight: 59 kg

DRUGS (1)
  1. NEXIUM [Suspect]
     Active Substance: ESOMEPRAZOLE MAGNESIUM
     Indication: GASTROOESOPHAGEAL REFLUX DISEASE
     Route: 048

REACTIONS (9)
  - Diverticulitis [Unknown]
  - Drug dose omission [Unknown]
  - Back injury [Unknown]
  - Amnesia [Unknown]
  - Road traffic accident [Unknown]
  - Gastrooesophageal reflux disease [Unknown]
  - Oesophageal pain [Unknown]
  - Neck injury [Unknown]
  - Polyp [Unknown]

NARRATIVE: CASE EVENT DATE: 2000
